FAERS Safety Report 8142094-6 (Version None)
Quarter: 2012Q1

REPORT INFORMATION
  Report Type: 
  Country: None (occurrence: None)
  Receive Date: 20120216
  Receipt Date: 20120213
  Transmission Date: 20120608
  Serious: Yes (Hospitalization)
  Sender: FDA-Public Use
  Company Number: US-ACTELION-A-NJ2009-26714

PATIENT

DRUGS (3)
  1. TRACLEER [Suspect]
     Indication: PULMONARY ARTERIAL HYPERTENSION
     Dosage: 125 MG, BID
     Route: 048
     Dates: start: 20090201
  2. REVATIO [Concomitant]
  3. TRACLEER [Suspect]
     Dosage: 62.5 MG, BID
     Route: 048
     Dates: start: 20090101, end: 20090201

REACTIONS (10)
  - DYSPNOEA [None]
  - FATIGUE [None]
  - PULMONARY HYPERTENSION [None]
  - INFECTION [None]
  - MYOCARDIAL INFARCTION [None]
  - PNEUMONIA [None]
  - SYNCOPE [None]
  - PAIN [None]
  - OXYGEN SATURATION DECREASED [None]
  - CHEST PAIN [None]
